FAERS Safety Report 23764997 (Version 1)
Quarter: 2024Q2

REPORT INFORMATION
  Report Type: Spontaneous
  Country: CA (occurrence: CA)
  Receive Date: 20240420
  Receipt Date: 20240420
  Transmission Date: 20240716
  Serious: Yes (Hospitalization)
  Sender: FDA-Public Use
  Company Number: None

PATIENT
  Age: 51 Year
  Sex: Female

DRUGS (1)
  1. PACLITAXEL [Suspect]
     Active Substance: PACLITAXEL
     Indication: Breast cancer
     Dosage: LIQUID INTRAVENOUS

REACTIONS (6)
  - Chest discomfort [Unknown]
  - Dyspnoea [Unknown]
  - Hypoaesthesia [Unknown]
  - Nausea [Unknown]
  - Tachycardia [Unknown]
  - Vomiting [Unknown]
